FAERS Safety Report 23319614 (Version 2)
Quarter: 2024Q1

REPORT INFORMATION
  Report Type: Report from Study
  Country: TH (occurrence: None)
  Receive Date: 20231220
  Receipt Date: 20240307
  Transmission Date: 20240410
  Serious: Yes (Hospitalization, Other)
  Sender: FDA-Public Use
  Company Number: 2023A263909

PATIENT
  Age: 93 Year
  Sex: Female

DRUGS (6)
  1. TAGRISSO [Suspect]
     Active Substance: OSIMERTINIB
     Indication: Non-small cell lung cancer
     Route: 048
     Dates: start: 20230816
  2. SEROQUEL [Concomitant]
     Active Substance: QUETIAPINE FUMARATE
     Indication: Affect lability
     Dates: start: 20231102
  3. NEURONTIN [Concomitant]
     Active Substance: GABAPENTIN
     Indication: Neuralgia
     Dates: start: 20231102
  4. NEURONTIN [Concomitant]
     Active Substance: GABAPENTIN
     Indication: Muscle spasticity
     Dates: start: 20231102
  5. MEGESTROL [Concomitant]
     Active Substance: MEGESTROL
     Indication: Hormone level abnormal
     Dates: start: 20231102
  6. LOSEC [Concomitant]
     Active Substance: OMEPRAZOLE
     Indication: Gastrointestinal disorder
     Dates: start: 20231102

REACTIONS (5)
  - Swelling face [Not Recovered/Not Resolved]
  - Fall [Unknown]
  - COVID-19 [Recovered/Resolved]
  - Tumour marker increased [Unknown]
  - Product dose omission issue [Unknown]

NARRATIVE: CASE EVENT DATE: 20231113
